FAERS Safety Report 9137160 (Version 1)
Quarter: 2013Q1

REPORT INFORMATION
  Report Type: Spontaneous
  Country: US (occurrence: US)
  Receive Date: 20130219
  Receipt Date: 20130219
  Transmission Date: 20140127
  Serious: No
  Sender: FDA-Public Use
  Company Number: US-BRISTOL-MYERS SQUIBB COMPANY-17133653

PATIENT
  Age: 49 Year
  Sex: Female
  Weight: 122.45 kg

DRUGS (3)
  1. ABATACEPT SUBQ INJECTION 125MG/ML [Suspect]
     Indication: RHEUMATOID ARTHRITIS
     Dosage: LAST INJECTION:  14NOV2012 .PREVIOUSLY:1000MG IV
     Route: 058
     Dates: start: 201203
  2. ALEVE [Concomitant]
  3. IBUPROFEN [Concomitant]

REACTIONS (5)
  - Drug ineffective [Unknown]
  - Pain [Not Recovered/Not Resolved]
  - Weight decreased [Unknown]
  - Drug dose omission [Unknown]
  - Insomnia [Not Recovered/Not Resolved]
